FAERS Safety Report 9912568 (Version 2)
Quarter: 2014Q1

REPORT INFORMATION
  Report Type: Spontaneous
  Country: JP (occurrence: None)
  Receive Date: 20140212
  Receipt Date: 20140319
  Transmission Date: 20141002
  Serious: Yes (Hospitalization, Other)
  Sender: FDA-Public Use
  Company Number: ABR_01301_2013

PATIENT
  Age: 17 Year
  Sex: Male
  Weight: 59.9 kg

DRUGS (1)
  1. GLIADEL [Suspect]
     Indication: MALIGNANT GLIOMA
     Dosage: [61.6 MG,  8 DOSAGE FORMS ONCE] INTRACEREBRAL
     Dates: start: 20130704, end: 20130704

REACTIONS (6)
  - Impaired healing [None]
  - Brain oedema [None]
  - Cerebrospinal fluid leakage [None]
  - Convulsion [None]
  - Procedural complication [None]
  - Impaired healing [None]
